FAERS Safety Report 4991438-2 (Version None)
Quarter: 2006Q2

REPORT INFORMATION
  Report Type: 
  Country: None (occurrence: None)
  Receive Date: 20060502
  Receipt Date: 20060502
  Transmission Date: 20061013
  Serious: Yes (Hospitalization)
  Sender: FDA-Public Use
  Company Number: None

PATIENT
  Sex: Female
  Weight: 57.1 kg

DRUGS (2)
  1. CISPLATIN [Suspect]
     Indication: SMALL CELL LUNG CANCER STAGE UNSPECIFIED
     Dosage: 128 MG
     Dates: start: 20060410
  2. ETOPOSIDE [Suspect]
     Dosage: 136 MG
     Dates: start: 20060412

REACTIONS (1)
  - PULMONARY EMBOLISM [None]
